FAERS Safety Report 5731743-5 (Version None)
Quarter: 2008Q2

REPORT INFORMATION
  Report Type: 
  Country: None (occurrence: None)
  Receive Date: 20080506
  Receipt Date: 20080506
  Transmission Date: 20081010
  Serious: No
  Sender: FDA-Public Use
  Company Number: None

PATIENT
  Age: 65 Year
  Sex: Female
  Weight: 80.2867 kg

DRUGS (12)
  1. JANUVIA [Suspect]
     Indication: TYPE 2 DIABETES MELLITUS
     Dosage: 100MG ONCE DAILY PO
     Route: 048
     Dates: start: 20070312, end: 20080317
  2. PREMPRO [Concomitant]
  3. HYDROCHLOROTHIAZIDE [Concomitant]
  4. ATENOLOL [Concomitant]
  5. LIPITOR [Concomitant]
  6. METFORMIN HCL [Concomitant]
  7. GLYBURIDE [Concomitant]
  8. ENALAPRIL MALEATE [Concomitant]
  9. NASONEX [Concomitant]
  10. GLUCOSAMINE [Concomitant]
  11. FLAX SEED OIL [Concomitant]
  12. CENTRUM SILVER [Concomitant]

REACTIONS (2)
  - COUGH [None]
  - WHEEZING [None]
